FAERS Safety Report 9877897 (Version 2)
Quarter: 2014Q1

REPORT INFORMATION
  Report Type: Report from Study
  Country: US (occurrence: US)
  Receive Date: 20140206
  Receipt Date: 20140321
  Transmission Date: 20141002
  Serious: Yes (Hospitalization)
  Sender: FDA-Public Use
  Company Number: US-NAPPMUNDI-USA-2014-0110794

PATIENT
  Age: 47 Year
  Sex: Male

DRUGS (2)
  1. OXY CR TAB [Suspect]
     Indication: NEUROPATHY PERIPHERAL
     Dosage: 80-160 MG, TID
     Route: 048
     Dates: start: 20131227
  2. OXY CR TAB [Suspect]
     Indication: PAIN IN EXTREMITY

REACTIONS (7)
  - Diabetic coma [Unknown]
  - Muscle tightness [Unknown]
  - Hot flush [Unknown]
  - Feeling cold [Unknown]
  - Tremor [Unknown]
  - Diarrhoea [Unknown]
  - Drug withdrawal syndrome [Unknown]
